FAERS Safety Report 6412117-0 (Version None)
Quarter: 2009Q4

REPORT INFORMATION
  Report Type: 
  Country: None (occurrence: None)
  Receive Date: 20091023
  Receipt Date: 20091013
  Transmission Date: 20100525
  Serious: Yes (Other)
  Sender: FDA-Public Use
  Company Number: US-JNJFOC-20090804346

PATIENT
  Sex: Female

DRUGS (1)
  1. TAPENTADOL HYDROCHLORIDE [Suspect]
     Indication: PAIN
     Dosage: AS NEEDED
     Route: 048
     Dates: start: 20090810, end: 20090811

REACTIONS (2)
  - SWOLLEN TONGUE [None]
  - THROAT TIGHTNESS [None]
